FAERS Safety Report 16125186 (Version 2)
Quarter: 2020Q3

REPORT INFORMATION
  Report Type: Spontaneous
  Country: FR (occurrence: FR)
  Receive Date: 20190327
  Receipt Date: 20200917
  Transmission Date: 20201102
  Serious: Yes (Other)
  Sender: FDA-Public Use
  Company Number: PHHY2019FR062249

PATIENT
  Age: 84 Year
  Sex: Female

DRUGS (8)
  1. CORGARD [Suspect]
     Active Substance: NADOLOL
     Indication: HYPERTENSION
     Dosage: UNK (NON RENSEIGN?E)
     Route: 048
     Dates: start: 201805
  2. CHLORAMINOPHENE [Suspect]
     Active Substance: CHLORAMBUCIL
     Indication: WALDENSTROM^S MACROGLOBULINAEMIA
     Dosage: UNK(5 CURES AU TOTAL)
     Route: 048
     Dates: start: 20180305, end: 20180820
  3. ELIQUIS [Suspect]
     Active Substance: APIXABAN
     Indication: HYPERTENSION
     Dosage: UNK (NON RENSEIGN?E)
     Route: 048
     Dates: start: 201805
  4. ALLOPURINOL. [Suspect]
     Active Substance: ALLOPURINOL
     Indication: PROPHYLAXIS
     Dosage: UNK(NON RENSEIGN?E)
     Route: 048
     Dates: start: 201803
  5. BACTRIM [Suspect]
     Active Substance: SULFAMETHOXAZOLE\TRIMETHOPRIM
     Indication: PROPHYLAXIS
     Dosage: UNK (NON RENSEIGN?E)
     Route: 048
     Dates: start: 201803, end: 20190207
  6. MABTHERA [Suspect]
     Active Substance: RITUXIMAB
     Indication: WALDENSTROM^S MACROGLOBULINAEMIA
     Dosage: UNK(5 CURES AU TOTAL)
     Route: 042
     Dates: start: 20180305, end: 20180820
  7. LASILIX [Suspect]
     Active Substance: FUROSEMIDE
     Indication: HYPERTENSION
     Dosage: UNK(NON RENSEIGN?E)
     Route: 048
     Dates: start: 201805
  8. ZELITREX [Suspect]
     Active Substance: VALACYCLOVIR HYDROCHLORIDE
     Indication: PROPHYLAXIS
     Dosage: UNK (NON RENSEIGN?E)
     Route: 048
     Dates: start: 201803, end: 20190207

REACTIONS (1)
  - Neutropenia [Not Recovered/Not Resolved]

NARRATIVE: CASE EVENT DATE: 20190205
